FAERS Safety Report 7332097-3 (Version None)
Quarter: 2011Q1

REPORT INFORMATION
  Report Type: 
  Country: None (occurrence: None)
  Receive Date: 20110304
  Receipt Date: 20110218
  Transmission Date: 20110831
  Serious: Yes (Other)
  Sender: FDA-Public Use
  Company Number: PHHY2011US14325

PATIENT
  Sex: Male

DRUGS (2)
  1. SANDOSTATIN LAR [Suspect]
     Dosage: 30 MG, TIW
  2. SANDOSTATIN LAR [Suspect]
     Dosage: 6 VIALS EVERY 90 DAYS

REACTIONS (1)
  - GENERAL PHYSICAL HEALTH DETERIORATION [None]
